FAERS Safety Report 23862524 (Version 2)
Quarter: 2024Q2

REPORT INFORMATION
  Report Type: Spontaneous
  Country: US (occurrence: US)
  Receive Date: 20240516
  Receipt Date: 20240625
  Transmission Date: 20240716
  Serious: No
  Sender: FDA-Public Use
  Company Number: US-PFIZER INC-PV202400063464

PATIENT
  Age: 39 Year
  Sex: Female

DRUGS (3)
  1. CARBOPLATIN [Suspect]
     Active Substance: CARBOPLATIN
     Indication: Non-small cell lung cancer
     Dosage: DAY 1:KEYTRUDA, CARBOPLATIN AND PREMETREXED:DAY 8: KEYTRUDA: ALONE;DAY 21:OFF
  2. PEMETREXED [Suspect]
     Active Substance: PEMETREXED
     Indication: Non-small cell lung cancer
     Dosage: DAY 1:KEYTRUDA, CARBOPLATIN AND PREMETREXED:DAY 8: KEYTRUDA: ALONE;DAY 21:OFF
  3. KEYTRUDA [Suspect]
     Active Substance: PEMBROLIZUMAB
     Indication: Non-small cell lung cancer
     Dosage: DAY 1:KEYTRUDA, CARBOPLATIN AND PREMETREXED:DAY 8: KEYTRUDA: ALONE;DAY 21:OFF

REACTIONS (2)
  - Neoplasm progression [Unknown]
  - Off label use [Unknown]
